FAERS Safety Report 4733802-2 (Version None)
Quarter: 2005Q3

REPORT INFORMATION
  Report Type: 
  Country: None (occurrence: None)
  Receive Date: 20050803
  Receipt Date: 20050801
  Transmission Date: 20060218
  Serious: Yes (Other)
  Sender: FDA-Public Use
  Company Number: US-MERCK-0508USA00106

PATIENT
  Age: 63 Year
  Sex: Male

DRUGS (14)
  1. ZOCOR [Suspect]
     Route: 048
  2. COREG [Suspect]
     Indication: CARDIAC FAILURE CONGESTIVE
     Route: 065
  3. COREG [Suspect]
     Indication: CARDIOMYOPATHY
     Route: 065
  4. LASIX [Concomitant]
     Route: 065
  5. NOVOLOG [Concomitant]
     Route: 065
  6. LANTUS [Concomitant]
     Route: 065
  7. ALBUTEROL [Concomitant]
     Route: 065
  8. GLIPIZIDE [Concomitant]
     Route: 065
  9. FLONASE [Concomitant]
     Route: 065
  10. ASPIRIN [Concomitant]
     Route: 065
  11. DIGOXIN [Concomitant]
     Route: 065
  12. PRINIVIL [Concomitant]
     Route: 065
  13. BRIMONIDINE TARTRATE [Concomitant]
     Route: 047
  14. TERAZOSIN HYDROCHLORIDE [Concomitant]
     Route: 065

REACTIONS (5)
  - FALL [None]
  - OEDEMA [None]
  - STOOL ANALYSIS ABNORMAL [None]
  - SYNCOPE [None]
  - WEIGHT INCREASED [None]
